FAERS Safety Report 6794190-3 (Version None)
Quarter: 2010Q2

REPORT INFORMATION
  Report Type: 
  Country: None (occurrence: None)
  Receive Date: 20100624
  Receipt Date: 20080818
  Transmission Date: 20101027
  Serious: No
  Sender: FDA-Public Use
  Company Number: US-PFIZER INC-ENC200800160

PATIENT

DRUGS (1)
  1. ARGATROBAN [Suspect]
     Indication: HEPARIN-INDUCED THROMBOCYTOPENIA
     Dosage: 0.4 MCG/KG/MIN,FREQUENCY:  UNK
     Route: 042
     Dates: start: 20080815

REACTIONS (1)
  - BLOOD CALCIUM INCREASED [None]
